FAERS Safety Report 6412281-3 (Version None)
Quarter: 2009Q4

REPORT INFORMATION
  Report Type: 
  Country: None (occurrence: None)
  Receive Date: 20091023
  Receipt Date: 20091002
  Transmission Date: 20100525
  Serious: Yes (Hospitalization, Other)
  Sender: FDA-Public Use
  Company Number: US-ELI_LILLY_AND_COMPANY-US200910000602

PATIENT
  Sex: Female

DRUGS (10)
  1. ALIMTA [Suspect]
     Indication: NON-SMALL CELL LUNG CANCER
     Dosage: 750 MG, UNK
     Route: 042
     Dates: start: 20090812, end: 20090902
  2. CISPLATIN [Concomitant]
     Indication: NON-SMALL CELL LUNG CANCER
  3. CARBOPLATIN [Concomitant]
     Indication: NON-SMALL CELL LUNG CANCER
  4. FOLIC ACID [Concomitant]
  5. VITAMIN B-12 [Concomitant]
  6. DECADRON                                /CAN/ [Concomitant]
     Dosage: 4 MG, 2/D DAY BEFORE, DAY OF, AND DAY AFTER CHEMOTHERAPY TREATMENT
  7. LORTAB [Concomitant]
     Indication: PAIN
     Dosage: 10 MG, UNK
     Route: 048
     Dates: start: 20090723
  8. MAGNESIUM [Concomitant]
     Indication: BLOOD MAGNESIUM DECREASED
     Dosage: 400 MG, UNK
     Route: 048
  9. ZOLOFT [Concomitant]
     Indication: DEPRESSION
     Dosage: 50 MG, UNK
     Route: 048
  10. COMPAZINE [Concomitant]
     Indication: NAUSEA
     Dosage: 10 MG, UNK
     Route: 048

REACTIONS (5)
  - DIARRHOEA [None]
  - EOSINOPHIL COUNT ABNORMAL [None]
  - HYPONATRAEMIA [None]
  - NAUSEA [None]
  - VOMITING [None]
